FAERS Safety Report 13321463 (Version 1)
Quarter: 2017Q1

REPORT INFORMATION
  Report Type: Spontaneous
  Country: US (occurrence: US)
  Receive Date: 20170310
  Receipt Date: 20170310
  Transmission Date: 20170428
  Serious: Yes (Life-Threatening)
  Sender: FDA-Public Use
  Company Number: None

PATIENT
  Age: 42 Year
  Sex: Female
  Weight: 108 kg

DRUGS (8)
  1. XARELTO [Concomitant]
     Active Substance: RIVAROXABAN
  2. ARMOUR THYROID [Concomitant]
     Active Substance: THYROID, PORCINE
  3. AMETHIA LO [Suspect]
     Active Substance: ETHINYL ESTRADIOL\LEVONORGESTREL
     Indication: HORMONE REPLACEMENT THERAPY
     Route: 048
     Dates: start: 20170104, end: 20170219
  4. PRILOSEC [Concomitant]
     Active Substance: OMEPRAZOLE MAGNESIUM
  5. ZYRTEC [Concomitant]
     Active Substance: CETIRIZINE HYDROCHLORIDE
  6. TOPOMAX ER [Concomitant]
  7. PROVIGIL [Concomitant]
     Active Substance: MODAFINIL
  8. LEXAPRO [Concomitant]
     Active Substance: ESCITALOPRAM OXALATE

REACTIONS (3)
  - Pulmonary embolism [None]
  - Pain in extremity [None]
  - Muscle tightness [None]

NARRATIVE: CASE EVENT DATE: 20170220
